FAERS Safety Report 7413798-5 (Version None)
Quarter: 2011Q2

REPORT INFORMATION
  Report Type: 
  Country: None (occurrence: None)
  Receive Date: 20110413
  Receipt Date: 20110406
  Transmission Date: 20111010
  Serious: Yes (Hospitalization, Other)
  Sender: FDA-Public Use
  Company Number: US-MERCK-1008USA04013

PATIENT
  Age: 46 Year
  Sex: Female
  Weight: 64 kg

DRUGS (5)
  1. FOSAMAX [Suspect]
     Indication: OSTEOPOROSIS
     Route: 048
     Dates: start: 20040101, end: 20100101
  2. PREMARIN [Concomitant]
     Indication: HORMONE THERAPY
     Route: 065
     Dates: start: 20000101
  3. FOSAMAX [Suspect]
     Indication: OSTEOPENIA
     Route: 048
     Dates: start: 20040101, end: 20100101
  4. FOSAMAX [Suspect]
     Route: 048
     Dates: end: 20100713
  5. VITAMINS (UNSPECIFIED) [Concomitant]
     Route: 065
     Dates: start: 20031201

REACTIONS (44)
  - OSTEOARTHRITIS [None]
  - BACK DISORDER [None]
  - ALANINE AMINOTRANSFERASE INCREASED [None]
  - LEUKOPENIA [None]
  - BLOOD GLUCOSE DECREASED [None]
  - GASTROOESOPHAGEAL REFLUX DISEASE [None]
  - DERMATITIS [None]
  - CUBITAL TUNNEL SYNDROME [None]
  - INTERVERTEBRAL DISC DEGENERATION [None]
  - BLOOD ALKALINE PHOSPHATASE INCREASED [None]
  - HEARING IMPAIRED [None]
  - CONSTIPATION [None]
  - POOR PERIPHERAL CIRCULATION [None]
  - OEDEMA PERIPHERAL [None]
  - FALL [None]
  - ACROCHORDON [None]
  - GASTRITIS [None]
  - CARPAL TUNNEL SYNDROME [None]
  - RASH [None]
  - ASPARTATE AMINOTRANSFERASE INCREASED [None]
  - ANXIETY DISORDER [None]
  - BREAST DISORDER [None]
  - FUNGAL SKIN INFECTION [None]
  - FIBROMYALGIA [None]
  - HYPOAESTHESIA [None]
  - IMPAIRED HEALING [None]
  - NAUSEA [None]
  - EYE DISORDER [None]
  - RENAL CYST [None]
  - ABDOMINAL DISCOMFORT [None]
  - NECK PAIN [None]
  - BACK PAIN [None]
  - PRESBYACUSIS [None]
  - NEUROPATHY PERIPHERAL [None]
  - MELANOCYTIC NAEVUS [None]
  - HYPOAESTHESIA FACIAL [None]
  - CHEST PAIN [None]
  - BURSITIS [None]
  - FEMUR FRACTURE [None]
  - DYSPEPSIA [None]
  - TINNITUS [None]
  - ARTHRALGIA [None]
  - SKIN PAPILLOMA [None]
  - ANAEMIA [None]
